FAERS Safety Report 15885572 (Version 9)
Quarter: 2022Q2

REPORT INFORMATION
  Report Type: Spontaneous
  Country: HU (occurrence: HU)
  Receive Date: 20190129
  Receipt Date: 20220523
  Transmission Date: 20220721
  Serious: Yes (Hospitalization, Other)
  Sender: FDA-Public Use
  Company Number: HU-NOVPHSZ-PHHY2018HU044576

PATIENT
  Age: 73 Year
  Sex: Male

DRUGS (8)
  1. PANTOPRAZOLE [Suspect]
     Active Substance: PANTOPRAZOLE
     Indication: General physical condition
     Dosage: 20 MILLIGRAM, QD (20 MG, QD)
     Route: 065
  2. BISOPROLOL [Suspect]
     Active Substance: BISOPROLOL
     Indication: General physical condition
     Dosage: 5 MILLIGRAM, QD (5 MG, QD)
     Route: 065
  3. ASPIRIN [Suspect]
     Active Substance: ASPIRIN
     Indication: Product used for unknown indication
     Dosage: 100 MILLIGRAM, QD (100 MG, QD)
     Route: 065
  4. RIVAROXABAN [Suspect]
     Active Substance: RIVAROXABAN
     Indication: Product used for unknown indication
     Dosage: 20 MILLIGRAM, QD (20 MG, QD)
     Route: 065
  5. FUROSEMIDE [Concomitant]
     Active Substance: FUROSEMIDE
     Indication: Product used for unknown indication
     Dosage: 125 MILLIGRAM, QD (125 MG, QD)
     Route: 065
  6. POTASSIUM CHLORIDE [Concomitant]
     Active Substance: POTASSIUM CHLORIDE
     Indication: Product used for unknown indication
     Dosage: 600 MILLIGRAM, QD (600 MG, QD)
     Route: 065
  7. COENZYME Q10 [Concomitant]
     Active Substance: DIETARY SUPPLEMENT\UBIDECARENONE
     Dosage: 300 MILLIGRAM, QD, 100 MG, 3X/DAY
  8. SPIRONOLACTONE [Concomitant]
     Active Substance: SPIRONOLACTONE
     Dosage: 25 MILLIGRAM, QD, 25 MG, 1X/DAY

REACTIONS (11)
  - Ischaemic cardiomyopathy [Unknown]
  - Gait disturbance [Recovered/Resolved]
  - Left ventricular dysfunction [Unknown]
  - Renal impairment [Unknown]
  - Hypertension [Unknown]
  - Acute myocardial infarction [Unknown]
  - Cardiac failure [Unknown]
  - Hyponatraemia [Recovered/Resolved]
  - Ventricular hypokinesia [Unknown]
  - Product use in unapproved indication [Unknown]
  - Off label use [Unknown]

NARRATIVE: CASE EVENT DATE: 20100101
